FAERS Safety Report 21631884 (Version 1)
Quarter: 2022Q4

REPORT INFORMATION
  Report Type: Spontaneous
  Country: US (occurrence: US)
  Receive Date: 20221123
  Receipt Date: 20221123
  Transmission Date: 20230113
  Serious: Yes (Other)
  Sender: FDA-Public Use
  Company Number: US-drreddys-LIT/USA/22/0157393

PATIENT
  Age: 47 Year
  Sex: Male

DRUGS (7)
  1. CARFILZOMIB [Suspect]
     Active Substance: CARFILZOMIB
     Indication: Light chain disease
  2. CARFILZOMIB [Suspect]
     Active Substance: CARFILZOMIB
  3. CARFILZOMIB [Suspect]
     Active Substance: CARFILZOMIB
  4. DEXAMETHASONE SODIUM PHOSPHATE [Suspect]
     Active Substance: DEXAMETHASONE SODIUM PHOSPHATE
     Indication: Light chain disease
  5. VENETOCLAX [Suspect]
     Active Substance: VENETOCLAX
     Indication: Light chain disease
  6. VENETOCLAX [Suspect]
     Active Substance: VENETOCLAX
     Dosage: REDUCED
  7. DARATUMUMAB [Suspect]
     Active Substance: DARATUMUMAB
     Indication: Light chain disease

REACTIONS (6)
  - Plasma cell myeloma refractory [Unknown]
  - Therapeutic response unexpected [Unknown]
  - Minimal residual disease [Unknown]
  - Neutropenia [Recovering/Resolving]
  - Thrombocytopenia [Recovering/Resolving]
  - Product use in unapproved indication [Unknown]
